FAERS Safety Report 5886236-1 (Version None)
Quarter: 2008Q3

REPORT INFORMATION
  Report Type: 
  Country: None (occurrence: None)
  Receive Date: 20080917
  Receipt Date: 20080903
  Transmission Date: 20090109
  Serious: Yes (Hospitalization, Other)
  Sender: FDA-Public Use
  Company Number: US-ELI_LILLY_AND_COMPANY-US200809001128

PATIENT
  Sex: Female

DRUGS (1)
  1. ALIMTA [Suspect]
     Indication: NON-SMALL CELL LUNG CANCER
     Dosage: 500 MG/M2, UNK
     Dates: start: 20080818, end: 20080101

REACTIONS (7)
  - DYSPNOEA [None]
  - LUNG INFILTRATION [None]
  - OXYGEN CONSUMPTION INCREASED [None]
  - PLEURITIC PAIN [None]
  - PNEUMONIA [None]
  - PYREXIA [None]
  - SPUTUM ABNORMAL [None]
